FAERS Safety Report 25980373 (Version 2)
Quarter: 2025Q4

REPORT INFORMATION
  Report Type: Spontaneous
  Country: CA (occurrence: CA)
  Receive Date: 20251030
  Receipt Date: 20251229
  Transmission Date: 20260118
  Serious: Yes (Hospitalization, Other)
  Sender: PFIZER
  Company Number: CA-PFIZER INC-202500188086

PATIENT
  Age: 18 Year
  Sex: Male
  Weight: 62 kg

DRUGS (3)
  1. IXIFI [Suspect]
     Active Substance: INFLIXIMAB-QBTX
     Indication: Crohn^s disease
     Dosage: 500 MG, EVERY 4 WEEKS
     Route: 042
     Dates: start: 20250620
  2. IXIFI [Suspect]
     Active Substance: INFLIXIMAB-QBTX
     Dosage: 500 MG, EVERY 4 WEEKS
     Route: 042
     Dates: start: 20250912
  3. IXIFI [Suspect]
     Active Substance: INFLIXIMAB-QBTX
     Dosage: 500 MG, AFTER 6 WEEKS (500 MG, EVERY 4 WEEKS)
     Route: 042
     Dates: start: 20251024

REACTIONS (1)
  - Intestinal resection [Recovering/Resolving]

NARRATIVE: CASE EVENT DATE: 20251017
